FAERS Safety Report 9837858 (Version 1)
Quarter: 2014Q1

REPORT INFORMATION
  Report Type: Spontaneous
  Country: US (occurrence: None)
  Receive Date: 20140117
  Receipt Date: 20140117
  Transmission Date: 20141002
  Serious: Yes (Life-Threatening, Hospitalization, Disabling)
  Sender: FDA-Public Use
  Company Number: None

PATIENT
  Age: 34 Year
  Sex: Female
  Weight: 86.18 kg

DRUGS (6)
  1. MIRENA [Suspect]
  2. DYAZIDE [Concomitant]
  3. LISINOPRIL [Concomitant]
  4. SPIRONLACTONE [Concomitant]
  5. LEVOTHYROXINE [Concomitant]
  6. VITAMIN [Concomitant]

REACTIONS (12)
  - Adrenal disorder [None]
  - Menopause [None]
  - Hypothyroidism [None]
  - Palpitations [None]
  - Ventricular extrasystoles [None]
  - Palpitations [None]
  - Middle insomnia [None]
  - Activities of daily living impaired [None]
  - Impaired work ability [None]
  - Reading disorder [None]
  - Fatigue [None]
  - Hypertension [None]
